FAERS Safety Report 13934962 (Version 3)
Quarter: 2018Q4

REPORT INFORMATION
  Report Type: Report from Study
  Country: None (occurrence: BR)
  Receive Date: 20170905
  Receipt Date: 20181031
  Transmission Date: 20190204
  Serious: Yes (Other)
  Sender: FDA-Public Use
  Company Number: BR-ABBVIE-17K-020-2087980-00

PATIENT
  Age: 57 Year
  Sex: Male
  Weight: 100 kg

DRUGS (4)
  1. HUMIRA [Suspect]
     Active Substance: ADALIMUMAB
     Indication: PSORIASIS
     Route: 058
     Dates: start: 20160210
  2. PHENOBARBITAL. [Concomitant]
     Active Substance: PHENOBARBITAL
     Indication: EPILEPSY
  3. RISPERIDONE. [Concomitant]
     Active Substance: RISPERIDONE
     Indication: EPILEPSY
  4. RIVOTRIL [Concomitant]
     Active Substance: CLONAZEPAM
     Indication: EPILEPSY

REACTIONS (11)
  - Therapeutic response shortened [Not Recovered/Not Resolved]
  - Epilepsy [Unknown]
  - Epilepsy [Recovered/Resolved]
  - Localised infection [Unknown]
  - Hyperphagia [Not Recovered/Not Resolved]
  - Weight increased [Not Recovered/Not Resolved]
  - Epilepsy [Recovered/Resolved]
  - Ear infection [Unknown]
  - Pharyngitis [Unknown]
  - Somnolence [Not Recovered/Not Resolved]
  - Skin exfoliation [Not Recovered/Not Resolved]

NARRATIVE: CASE EVENT DATE: 2016
